FAERS Safety Report 6397423-0 (Version None)
Quarter: 2009Q4

REPORT INFORMATION
  Report Type: 
  Country: None (occurrence: None)
  Receive Date: 20091012
  Receipt Date: 20091006
  Transmission Date: 20100525
  Serious: Yes (Life-Threatening, Hospitalization)
  Sender: FDA-Public Use
  Company Number: PHEH2009US13356

PATIENT
  Sex: Male

DRUGS (1)
  1. GLEEVEC [Suspect]

REACTIONS (2)
  - HALLUCINATION [None]
  - SUICIDAL IDEATION [None]
